FAERS Safety Report 14930897 (Version 1)
Quarter: 2018Q2

REPORT INFORMATION
  Report Type: Spontaneous
  Country: US (occurrence: US)
  Receive Date: 20180524
  Receipt Date: 20180524
  Transmission Date: 20180711
  Serious: No
  Sender: FDA-Public Use
  Company Number: US-BAUSCH-BL-2017-014674

PATIENT
  Age: 64 Year
  Sex: Male
  Weight: 70.37 kg

DRUGS (3)
  1. PROLENSA [Suspect]
     Active Substance: BROMFENAC SODIUM
     Dosage: ONCE DAILY AFTER THE FIRST WEEK
     Route: 047
     Dates: start: 201705
  2. PROLENSA [Suspect]
     Active Substance: BROMFENAC SODIUM
     Indication: POSTOPERATIVE CARE
     Dosage: FOR THE FIRST WEEK
     Route: 047
     Dates: start: 20170429
  3. OCUFLO [Concomitant]
     Indication: PRODUCT USED FOR UNKNOWN INDICATION
     Dates: start: 20170429

REACTIONS (3)
  - Incorrect drug administration duration [Unknown]
  - Drug prescribing error [Unknown]
  - Off label use [Not Recovered/Not Resolved]

NARRATIVE: CASE EVENT DATE: 20170429
